FAERS Safety Report 9652925 (Version 1)
Quarter: 2013Q4

REPORT INFORMATION
  Report Type: Spontaneous
  Country: TR (occurrence: TR)
  Receive Date: 20131029
  Receipt Date: 20131029
  Transmission Date: 20140711
  Serious: Yes (Hospitalization)
  Sender: FDA-Public Use
  Company Number: TR-ROXANE LABORATORIES, INC.-2013-RO-01737RO

PATIENT
  Age: 10 Month
  Sex: Female

DRUGS (5)
  1. LEVETIRACETAM [Suspect]
     Indication: EARLY INFANTILE EPILEPTIC ENCEPHALOPATHY WITH BURST-SUPPRESSION
  2. VIGABATRIN [Concomitant]
     Indication: EARLY INFANTILE EPILEPTIC ENCEPHALOPATHY WITH BURST-SUPPRESSION
  3. TOPIRAMATE [Concomitant]
     Indication: EARLY INFANTILE EPILEPTIC ENCEPHALOPATHY WITH BURST-SUPPRESSION
  4. CALCIUM FOLINATE [Concomitant]
     Indication: EARLY INFANTILE EPILEPTIC ENCEPHALOPATHY WITH BURST-SUPPRESSION
  5. VITAMIN B6 [Concomitant]
     Indication: EARLY INFANTILE EPILEPTIC ENCEPHALOPATHY WITH BURST-SUPPRESSION

REACTIONS (3)
  - Accidental overdose [Recovered/Resolved]
  - Apathy [Recovered/Resolved]
  - Hypotonia [Recovered/Resolved]
